FAERS Safety Report 9447633 (Version 1)
Quarter: 2013Q3

REPORT INFORMATION
  Report Type: Report from Study
  Country: DE (occurrence: DE)
  Receive Date: 20130808
  Receipt Date: 20130808
  Transmission Date: 20140515
  Serious: Yes (Hospitalization)
  Sender: FDA-Public Use
  Company Number: DE-JNJFOC-20130718430

PATIENT
  Age: 15 Year
  Sex: Male
  Weight: 48.7 kg

DRUGS (3)
  1. REMICADE [Suspect]
     Indication: CROHN^S DISEASE
     Route: 042
     Dates: start: 20110927, end: 20121129
  2. HUMIRA [Suspect]
     Indication: CROHN^S DISEASE
     Route: 065
     Dates: start: 20121211
  3. AZATHIOPRINE [Concomitant]
     Route: 065

REACTIONS (1)
  - Crohn^s disease [Recovered/Resolved with Sequelae]
